FAERS Safety Report 6591059-4 (Version None)
Quarter: 2010Q1

REPORT INFORMATION
  Report Type: 
  Country: None (occurrence: None)
  Receive Date: 20100219
  Receipt Date: 20100204
  Transmission Date: 20100710
  Serious: Yes (Hospitalization)
  Sender: FDA-Public Use
  Company Number: DE-PFIZER INC-2007022767

PATIENT
  Age: 64 Year
  Sex: Male

DRUGS (14)
  1. LYRICA [Suspect]
     Route: 048
     Dates: start: 20061229
  2. NORVASC [Interacting]
     Route: 048
  3. CYMBALTA [Interacting]
     Route: 048
     Dates: start: 20070105, end: 20070110
  4. BISOPROLOL [Interacting]
     Route: 048
  5. REMERGIL [Interacting]
     Route: 048
  6. ATACAND [Interacting]
     Route: 048
  7. ESIDRIX [Concomitant]
  8. ASPIRIN [Concomitant]
     Route: 048
  9. PLAVIX [Concomitant]
     Route: 048
  10. SIMVASTATIN [Concomitant]
     Route: 048
  11. MOLSIDOMINE [Concomitant]
     Route: 048
  12. PANTOZOL [Concomitant]
     Route: 048
  13. PENTAERYTHRITOL TETRANITRATE [Concomitant]
     Route: 048
  14. DECORTIN [Concomitant]
     Route: 048

REACTIONS (5)
  - CARDIOVASCULAR INSUFFICIENCY [None]
  - DRUG INTERACTION [None]
  - HAEMATOCRIT DECREASED [None]
  - HAEMOGLOBIN DECREASED [None]
  - SYNCOPE [None]
